FAERS Safety Report 10011934 (Version 2)
Quarter: 2014Q1

REPORT INFORMATION
  Report Type: Spontaneous
  Country: AU (occurrence: AU)
  Receive Date: 20140314
  Receipt Date: 20140314
  Transmission Date: 20141002
  Serious: Yes (Death)
  Sender: FDA-Public Use
  Company Number: PHHY2014AU029517

PATIENT
  Sex: Female

DRUGS (2)
  1. GLIVEC [Suspect]
     Indication: PNEUMONITIS
     Dosage: 300 MG, DAILY
     Route: 048
     Dates: start: 20140225
  2. GLIVEC [Suspect]
     Indication: OFF LABEL USE

REACTIONS (4)
  - Superinfection [Fatal]
  - Disease progression [Fatal]
  - Pneumonitis [Fatal]
  - Dyspnoea [Fatal]
